FAERS Safety Report 8234151-0 (Version None)
Quarter: 2012Q1

REPORT INFORMATION
  Report Type: 
  Country: None (occurrence: None)
  Receive Date: 20120326
  Receipt Date: 20120313
  Transmission Date: 20120608
  Serious: Yes (Other)
  Sender: FDA-Public Use
  Company Number: US-SANOFI-AVENTIS-2012SA017681

PATIENT
  Age: 62 Year
  Sex: Female

DRUGS (21)
  1. HUMIRA [Suspect]
     Dates: start: 20120201
  2. VICODIN [Concomitant]
     Indication: PAIN
     Dosage: 5/325; UP TO 3 TIMES A DAY PRN
  3. ZOLPIDEM TARTRATE [Concomitant]
     Indication: INSOMNIA
  4. CARISOPRODOL [Concomitant]
     Indication: ARTHRITIS
  5. LOMOTIL [Concomitant]
  6. ANOVLAR [Concomitant]
     Dosage: 1/5 DAILY
  7. HUMIRA [Suspect]
     Indication: CROHN'S DISEASE
     Dates: start: 20110601, end: 20111201
  8. CYANOCOBALAMIN [Concomitant]
  9. ESCITALOPRAM OXALATE [Concomitant]
     Indication: DEPRESSION
  10. CALCIUM CARBONATE [Concomitant]
     Dosage: 1 TAB
  11. PLAQUENIL [Suspect]
     Route: 048
     Dates: start: 20120206
  12. LORAZEPAM [Concomitant]
     Indication: ANXIETY
  13. LORAZEPAM [Concomitant]
     Indication: DEPRESSION
  14. ERGOCALCIFEROL [Concomitant]
  15. HUMIRA [Suspect]
     Dates: start: 20111201, end: 20120101
  16. CELECOXIB [Concomitant]
     Indication: ARTHRITIS
  17. PANTOPRAZOLE [Concomitant]
  18. ESCITALOPRAM OXALATE [Concomitant]
     Indication: ANXIETY
  19. COLESTIPOL HYDROCHLORIDE [Concomitant]
     Dosage: 1 - 3 TIMES A DAY
  20. MULTI-VITAMINS [Concomitant]
  21. PLAQUENIL [Suspect]
     Indication: MYELITIS
     Route: 048
     Dates: start: 20111201

REACTIONS (15)
  - CROHN'S DISEASE [None]
  - CHRONIC SINUSITIS [None]
  - HYPOPHAGIA [None]
  - DECREASED ACTIVITY [None]
  - STREPTOCOCCAL INFECTION [None]
  - ABDOMINAL PAIN [None]
  - SYSTEMIC LUPUS ERYTHEMATOSUS [None]
  - CONSTIPATION [None]
  - RASH [None]
  - NEUROLOGICAL SYMPTOM [None]
  - NASOPHARYNGITIS [None]
  - MYELITIS [None]
  - CONDITION AGGRAVATED [None]
  - ACTIVITIES OF DAILY LIVING IMPAIRED [None]
  - DIARRHOEA [None]
